FAERS Safety Report 5558402-6 (Version None)
Quarter: 2007Q4

REPORT INFORMATION
  Report Type: 
  Country: None (occurrence: None)
  Receive Date: 20071214
  Receipt Date: 20071102
  Transmission Date: 20080405
  Serious: Yes (Other)
  Sender: FDA-Public Use
  Company Number: US-ABBOTT-07P-163-0366056-00

PATIENT
  Sex: Female
  Weight: 66.1 kg

DRUGS (5)
  1. HUMIRA [Suspect]
     Indication: RHEUMATOID ARTHRITIS
     Route: 058
     Dates: start: 20050301, end: 20061001
  2. METHOTREXATE [Concomitant]
     Indication: RHEUMATOID ARTHRITIS
     Route: 050
     Dates: start: 20050101, end: 20061101
  3. PREDNISONE [Concomitant]
     Indication: RHEUMATOID ARTHRITIS
     Route: 048
     Dates: start: 20030101
  4. ENALAPRIL MALEATE [Concomitant]
     Indication: HYPERTENSION
  5. RISEDRONATE SODIUM [Concomitant]
     Indication: OSTEOPOROSIS

REACTIONS (4)
  - COUGH [None]
  - DYSPNOEA [None]
  - INFLUENZA LIKE ILLNESS [None]
  - NON-SMALL CELL LUNG CANCER METASTATIC [None]
